FAERS Safety Report 9910732 (Version 1)
Quarter: 2014Q1

REPORT INFORMATION
  Report Type: Spontaneous
  Country: TR (occurrence: TR)
  Receive Date: 20140219
  Receipt Date: 20140219
  Transmission Date: 20141002
  Serious: Yes (Hospitalization)
  Sender: FDA-Public Use
  Company Number: TR-BAYER-2014-021670

PATIENT
  Sex: Male
  Weight: 100 kg

DRUGS (7)
  1. CORASPIN [Suspect]
     Dosage: 100 MG, QD
  2. PLAVIX [Suspect]
     Dosage: 75 MG, QD
  3. COUMADIN [Interacting]
  4. DELIX [Concomitant]
     Dosage: 5 MG, QD
  5. AVASTIN [Concomitant]
     Dosage: 20 MG, QD
  6. NEBIVOLOL HYDROCHLORIDE [Concomitant]
  7. DIGOXIN [Concomitant]

REACTIONS (1)
  - Arrhythmia [None]
